FAERS Safety Report 8493741 (Version 2)
Quarter: 2013Q1

REPORT INFORMATION
  Report Type: Spontaneous
  Country: US (occurrence: None)
  Receive Date: 20120316
  Receipt Date: 20130204
  Transmission Date: 20140127
  Serious: Yes (Other)
  Sender: FDA-Public Use
  Company Number: 2012031392

PATIENT
  Sex: Female
  Weight: 60.78 kg

DRUGS (14)
  1. HIZENTRA [Suspect]
     Indication: PELVIC INFLAMMATORY DISEASE
     Dosage: 1X/WEEK
     Route: 058
     Dates: start: 201112
  2. HIZENTRA [Suspect]
     Indication: IMMUNODEFICIENCY COMMON VARIABLE
     Dosage: 1X/WEEK
     Route: 058
     Dates: start: 201112
  3. PREDNISONE (PREDNISONE) [Concomitant]
  4. EPIPEN (EPINEPHRINE) [Concomitant]
  5. SINGULAIR [Concomitant]
  6. PREMARIN (ESTROGENS CONJUGATED) [Concomitant]
  7. VENTOLIN (SALBUTAMOL) [Concomitant]
  8. ADVAIR (SERETIDE/01420901/) [Concomitant]
  9. ALPRAZOLAM (ALPRAZOLAM) [Concomitant]
  10. TRAZODONE (TRAZODONE) [Concomitant]
  11. ZYRTEC (CETRIZINE HYDROCHLORIDE) [Concomitant]
  12. CELEXA (CITALOPRAM HYDROBROMIDE) [Concomitant]
  13. CYANOCOBALMIN (CYANOCOBALAMIN) [Concomitant]
  14. ADDERALL (OBETROL/01345401/) [Concomitant]

REACTIONS (14)
  - Infusion site haematoma [None]
  - Pneumonia [None]
  - Infusion site pain [None]
  - Infusion site pruritus [None]
  - Abdominal distension [None]
  - Fluid retention [None]
  - Infusion site discolouration [None]
  - Infusion site erythema [None]
  - Infusion site induration [None]
  - Infusion site mass [None]
  - Infusion site warmth [None]
  - Infusion site pain [None]
  - Infusion site urticaria [None]
  - Abnormal faeces [None]
